FAERS Safety Report 6815288-7 (Version None)
Quarter: 2010Q3

REPORT INFORMATION
  Report Type: 
  Country: None (occurrence: None)
  Receive Date: 20100702
  Receipt Date: 20100628
  Transmission Date: 20110219
  Serious: Yes (Other)
  Sender: FDA-Public Use
  Company Number: FR-BRISTOL-MYERS SQUIBB COMPANY-14528061

PATIENT
  Age: 39 Year
  Sex: Female
  Weight: 67 kg

DRUGS (2)
  1. ELISOR TABS 20 MG [Suspect]
     Indication: HYPERCHOLESTEROLAEMIA
  2. RAMIPRIL [Concomitant]

REACTIONS (2)
  - ABORTION INDUCED [None]
  - PREGNANCY [None]
